FAERS Safety Report 16735608 (Version 4)
Quarter: 2020Q2

REPORT INFORMATION
  Report Type: Spontaneous
  Country: AT (occurrence: AT)
  Receive Date: 20190823
  Receipt Date: 20200429
  Transmission Date: 20200713
  Serious: Yes (Life-Threatening, Hospitalization, Other)
  Sender: FDA-Public Use
  Company Number: PHHY2019AT193928

PATIENT
  Age: 56 Year
  Sex: Female

DRUGS (21)
  1. ETOPOSIDE. [Suspect]
     Active Substance: ETOPOSIDE
     Dosage: UNK (DOSE WAS REDUCED FROM THE 2ND CYCLE ONWARDS (TO DOSE LEVEL 3))
     Route: 065
  2. CYCLOPHOSPHAMIDE. [Suspect]
     Active Substance: CYCLOPHOSPHAMIDE
     Indication: HODGKIN^S DISEASE
     Dosage: UNK (DOSE WAS REDUCED FROM THE 2ND CYCLE ONWARDS (TO DOSE LEVEL 3))
     Route: 065
  3. ETOPOSIDE. [Suspect]
     Active Substance: ETOPOSIDE
     Indication: HODGKIN^S DISEASE
     Dosage: UNK (THE DOSE WAS REDUCED (TO DOSE LEVEL 2))
     Route: 065
  4. ETOPOSIDE. [Suspect]
     Active Substance: ETOPOSIDE
     Indication: HODGKIN^S DISEASE NODULAR SCLEROSIS STAGE IV
     Dosage: UNK
     Route: 065
     Dates: start: 2018
  5. BLEOMYCIN [Suspect]
     Active Substance: BLEOMYCIN SULFATE
     Dosage: UNK (THE DOSE WAS REDUCED (TO DOSE LEVEL 2))
     Route: 065
  6. DOXORUBICIN [Suspect]
     Active Substance: DOXORUBICIN
     Indication: HODGKIN^S DISEASE
     Dosage: UNK (DOSE WAS REDUCED FROM THE 2ND CYCLE ONWARDS (TO DOSE LEVEL 3))
     Route: 065
  7. CYCLOPHOSPHAMIDE. [Suspect]
     Active Substance: CYCLOPHOSPHAMIDE
     Dosage: UNK (THE DOSE WAS REDUCED (TO DOSE LEVEL 2))
     Route: 065
  8. PREDNISONE. [Suspect]
     Active Substance: PREDNISONE
     Indication: HODGKIN^S DISEASE
     Dosage: UNK (DOSE WAS REDUCED FROM THE 2ND CYCLE ONWARDS (TO DOSE LEVEL 3))
     Route: 065
  9. CYCLOPHOSPHAMIDE. [Suspect]
     Active Substance: CYCLOPHOSPHAMIDE
     Indication: HODGKIN^S DISEASE NODULAR SCLEROSIS STAGE IV
     Dosage: UNK
     Route: 065
     Dates: start: 2018
  10. PROCARBAZINE [Suspect]
     Active Substance: PROCARBAZINE
     Indication: HODGKIN^S DISEASE NODULAR SCLEROSIS STAGE IV
     Dosage: UNK
     Route: 065
     Dates: start: 2018
  11. BLEOMYCIN [Suspect]
     Active Substance: BLEOMYCIN SULFATE
     Indication: HODGKIN^S DISEASE
     Dosage: UNK (DOSE WAS REDUCED FROM THE 2ND CYCLE ONWARDS (TO DOSE LEVEL 3))
     Route: 065
  12. ONCOVIN [Suspect]
     Active Substance: VINCRISTINE SULFATE
     Dosage: UNK (THE DOSE WAS REDUCED (TO DOSE LEVEL 2)
     Route: 065
  13. PROCARBAZINE [Suspect]
     Active Substance: PROCARBAZINE
     Dosage: UNK (THE DOSE WAS REDUCED (TO DOSE LEVEL 2))
     Route: 065
  14. ONCOVIN [Suspect]
     Active Substance: VINCRISTINE SULFATE
     Indication: HODGKIN^S DISEASE NODULAR SCLEROSIS STAGE IV
     Dosage: UNK
     Route: 065
     Dates: start: 2018
  15. DOXORUBICIN [Suspect]
     Active Substance: DOXORUBICIN
     Dosage: UNK (THE DOSE WAS REDUCED (TO DOSE LEVEL 2))
     Route: 065
  16. PREDNISONE. [Suspect]
     Active Substance: PREDNISONE
     Dosage: UNK (THE DOSE WAS REDUCED (TO DOSE LEVEL 2))
     Route: 065
  17. DOXORUBICIN [Suspect]
     Active Substance: DOXORUBICIN
     Indication: HODGKIN^S DISEASE NODULAR SCLEROSIS STAGE IV
     Dosage: UNK
     Route: 065
     Dates: start: 2018
  18. PROCARBAZINE [Suspect]
     Active Substance: PROCARBAZINE
     Indication: HODGKIN^S DISEASE
     Dosage: UNK (DOSE WAS REDUCED FROM THE 2ND CYCLE ONWARDS (TO DOSE LEVEL 3))
     Route: 065
  19. PREDNISONE. [Suspect]
     Active Substance: PREDNISONE
     Indication: HODGKIN^S DISEASE NODULAR SCLEROSIS STAGE IV
     Dosage: UNK
     Route: 065
     Dates: start: 2018
  20. BLEOMYCIN [Suspect]
     Active Substance: BLEOMYCIN SULFATE
     Indication: HODGKIN^S DISEASE NODULAR SCLEROSIS STAGE IV
     Dosage: UNK
     Route: 065
     Dates: start: 2018
  21. ONCOVIN [Suspect]
     Active Substance: VINCRISTINE SULFATE
     Indication: HODGKIN^S DISEASE
     Dosage: UNK (DOSE WAS REDUCED FROM THE 2ND CYCLE ONWARDS (TO DOSE LEVEL 3))
     Route: 065

REACTIONS (3)
  - Neutropenia [Recovered/Resolved]
  - Febrile neutropenia [Recovered/Resolved]
  - Thrombocytopenia [Recovered/Resolved]
